FAERS Safety Report 6375407-6 (Version None)
Quarter: 2009Q3

REPORT INFORMATION
  Report Type: 
  Country: None (occurrence: None)
  Receive Date: 20090924
  Receipt Date: 20090918
  Transmission Date: 20100115
  Serious: Yes (Other)
  Sender: FDA-Public Use
  Company Number: US-WYE-H11085909

PATIENT
  Age: 68 Year
  Sex: Female
  Weight: 81.72 kg

DRUGS (5)
  1. ADVIL ALLERGY SINUS [Suspect]
     Indication: HYPERSENSITIVITY
     Dosage: 1 CAPLET X 1
     Route: 048
     Dates: start: 20090917, end: 20090917
  2. ADVIL ALLERGY SINUS [Suspect]
     Indication: SNEEZING
  3. ADVIL ALLERGY SINUS [Suspect]
     Indication: COUGH
  4. ADVIL ALLERGY SINUS [Suspect]
     Indication: NASAL CONGESTION
  5. LEVOXYL [Concomitant]
     Indication: THYROID DISORDER
     Route: 048
     Dates: start: 20000101

REACTIONS (4)
  - HYPERSENSITIVITY [None]
  - LIP SWELLING [None]
  - RASH PRURITIC [None]
  - SWOLLEN TONGUE [None]
